FAERS Safety Report 10252056 (Version 1)
Quarter: 2014Q2

REPORT INFORMATION
  Report Type: Spontaneous
  Country: FR (occurrence: FR)
  Receive Date: 20140623
  Receipt Date: 20140623
  Transmission Date: 20141212
  Serious: Yes (Hospitalization, Other)
  Sender: FDA-Public Use
  Company Number: PHHY2014FR075703

PATIENT
  Age: 62 Year
  Sex: Male

DRUGS (4)
  1. ZOMETA [Suspect]
     Indication: PLASMA CELL MYELOMA RECURRENT
     Dosage: UNK UKN, UNK
     Dates: start: 200910
  2. ZOMETA [Suspect]
     Dosage: UNK
     Dates: start: 201304
  3. ZOMETA [Suspect]
     Dosage: UNK
     Dates: start: 201312
  4. CLASTOBAN [Suspect]
     Dosage: UNK UKN, UNK

REACTIONS (1)
  - Osteonecrosis [Unknown]
